FAERS Safety Report 11393281 (Version 1)
Quarter: 2015Q3

REPORT INFORMATION
  Report Type: Spontaneous
  Country: US (occurrence: US)
  Receive Date: 20150818
  Receipt Date: 20150818
  Transmission Date: 20151125
  Serious: No
  Sender: FDA-Public Use
  Company Number: US-PFIZER INC-2015263988

PATIENT
  Sex: Female

DRUGS (2)
  1. LIPITOR [Suspect]
     Active Substance: ATORVASTATIN CALCIUM
     Dosage: 20 UNK, 1X/DAY(9-10PM EACH EVENING)
  2. UBIQUINOL [Suspect]
     Active Substance: UBIQUINOL
     Dosage: UNK

REACTIONS (1)
  - Fatigue [Unknown]
